FAERS Safety Report 6508651-5 (Version None)
Quarter: 2009Q4

REPORT INFORMATION
  Report Type: 
  Country: None (occurrence: None)
  Receive Date: 20091221
  Receipt Date: 20090730
  Transmission Date: 20100525
  Serious: No
  Sender: FDA-Public Use
  Company Number: US-ASTRAZENECA-2009SE06367

PATIENT
  Age: 74 Year
  Sex: Female

DRUGS (7)
  1. CRESTOR [Suspect]
     Route: 048
  2. AMIODARONE [Concomitant]
  3. WARFARIN SODIUM [Concomitant]
  4. METOPROLOL SUCCINATE [Concomitant]
  5. GLUCOSAMINE CHONDROITIN [Concomitant]
  6. FISH OIL [Concomitant]
  7. MULTI-VITAMIN [Concomitant]

REACTIONS (1)
  - OEDEMA PERIPHERAL [None]
